FAERS Safety Report 5333501-2 (Version None)
Quarter: 2007Q2

REPORT INFORMATION
  Report Type: 
  Country: None (occurrence: None)
  Receive Date: 20070521
  Receipt Date: 20070508
  Transmission Date: 20071010
  Serious: Yes (Hospitalization)
  Sender: FDA-Public Use
  Company Number: 232961K07USA

PATIENT
  Age: 33 Year
  Sex: Female

DRUGS (3)
  1. REBIF [Suspect]
     Indication: MULTIPLE SCLEROSIS
     Dosage: 44 MCG, 3 IN 1 WEEKS, SUBCUTANEOUS
     Route: 058
     Dates: start: 20060905, end: 20070410
  2. PAXIL [Concomitant]
  3. RISPERDAL [Concomitant]

REACTIONS (16)
  - AFFECTIVE DISORDER [None]
  - ANGER [None]
  - ANXIETY [None]
  - CRYING [None]
  - FATIGUE [None]
  - FLIGHT OF IDEAS [None]
  - GASTRIC DISORDER [None]
  - HALLUCINATION, AUDITORY [None]
  - HYPOAESTHESIA [None]
  - INSOMNIA [None]
  - ORAL INTAKE REDUCED [None]
  - PARAESTHESIA [None]
  - PRURITUS [None]
  - TEARFULNESS [None]
  - TREMOR [None]
  - WEIGHT INCREASED [None]
